FAERS Safety Report 7539362-5 (Version None)
Quarter: 2011Q2

REPORT INFORMATION
  Report Type: 
  Country: None (occurrence: None)
  Receive Date: 20110610
  Receipt Date: 20110412
  Transmission Date: 20111010
  Serious: Yes (Other)
  Sender: FDA-Public Use
  Company Number: JP-BAYER-2011-004940

PATIENT
  Age: 65 Year
  Sex: Male

DRUGS (5)
  1. NEXAVAR [Suspect]
     Dosage: DAILY DOSE 800 MG
     Route: 048
  2. NEXAVAR [Suspect]
     Dosage: DAILY DOSE 800 MG
     Route: 048
  3. NEXAVAR [Suspect]
     Indication: HEPATIC NEOPLASM MALIGNANT
     Dosage: DAILY DOSE 400 MG
     Route: 048
  4. NEXAVAR [Suspect]
     Dosage: DAILY DOSE 600 MG
     Route: 048
  5. COMBINATIONS OF ANTINEOPLASTIC AGENTS [Concomitant]

REACTIONS (2)
  - HEPATIC ARTERY OCCLUSION [None]
  - NAUSEA [None]
